FAERS Safety Report 10385311 (Version 6)
Quarter: 2015Q1

REPORT INFORMATION
  Report Type: Spontaneous
  Country: JP (occurrence: JP)
  Receive Date: 20140814
  Receipt Date: 20150120
  Transmission Date: 20150720
  Serious: Yes (Hospitalization, Other)
  Sender: FDA-Public Use
  Company Number: JP-BRISTOL-MYERS SQUIBB COMPANY-21051248

PATIENT
  Age: 77 Year
  Sex: Male
  Weight: 48 kg

DRUGS (10)
  1. ELIQUIS [Suspect]
     Active Substance: APIXABAN
     Indication: CEREBROVASCULAR ACCIDENT PROPHYLAXIS
     Dosage: 2.5 MG, QID
     Route: 048
     Dates: start: 20140530
  2. EDARAVONE [Concomitant]
     Active Substance: EDARAVONE
     Dosage: UNK
     Dates: start: 20140521
  3. PLAVIX [Suspect]
     Active Substance: CLOPIDOGREL BISULFATE
     Indication: CEREBRAL INFARCTION
     Dosage: 20MAY2014-04JUN2014;07JUN2014-22JUL2014
     Route: 048
     Dates: start: 20140519
  4. AZILSARTAN MEDOXOMIL [Concomitant]
     Active Substance: AZILSARTAN KAMEDOXOMIL
  5. PLAVIX [Suspect]
     Active Substance: CLOPIDOGREL BISULFATE
     Indication: ARTERIAL STENOSIS
  6. BAYASPIRIN [Suspect]
     Active Substance: ASPIRIN
     Indication: CEREBRAL INFARCTION
     Dosage: 30MAY2014-04JUN2014;26JUN2014
     Route: 048
     Dates: start: 20140530, end: 20140626
  7. BAYASPIRIN [Suspect]
     Active Substance: ASPIRIN
     Indication: ARTERIAL STENOSIS
  8. ZOSYN [Concomitant]
     Active Substance: PIPERACILLIN SODIUM\TAZOBACTAM SODIUM
  9. CRESTOR [Concomitant]
     Active Substance: ROSUVASTATIN CALCIUM
  10. ARGATROBAN. [Concomitant]
     Active Substance: ARGATROBAN

REACTIONS (2)
  - Haemorrhagic cerebral infarction [Recovered/Resolved]
  - Agranulocytosis [Recovered/Resolved]

NARRATIVE: CASE EVENT DATE: 20140604
